FAERS Safety Report 6373374-2 (Version None)
Quarter: 2009Q3

REPORT INFORMATION
  Report Type: 
  Country: None (occurrence: None)
  Receive Date: 20090924
  Receipt Date: 20090408
  Transmission Date: 20100115
  Serious: No
  Sender: FDA-Public Use
  Company Number: US-ASTRAZENECA-2009UW08891

PATIENT
  Age: 61 Year
  Sex: Female
  Weight: 78 kg

DRUGS (8)
  1. SEROQUEL XR [Suspect]
     Indication: MENTAL DISORDER
     Route: 048
  2. WELLBUTRIN [Concomitant]
  3. ZOCOR [Concomitant]
  4. ATIVAN [Concomitant]
  5. HYDROCODONE [Concomitant]
  6. MOBIC [Concomitant]
  7. BENICAR HCT [Concomitant]
  8. VITAMINS AND SUPPLEMENTS [Concomitant]

REACTIONS (5)
  - CONFUSIONAL STATE [None]
  - FLUSHING [None]
  - HUNGER [None]
  - HYPERHIDROSIS [None]
  - WEIGHT INCREASED [None]
